FAERS Safety Report 15823086 (Version 1)
Quarter: 2019Q1

REPORT INFORMATION
  Report Type: Report from Study
  Country: US (occurrence: US)
  Receive Date: 20190114
  Receipt Date: 20190114
  Transmission Date: 20190417
  Serious: No
  Sender: FDA-Public Use
  Company Number: PHEH2019US001246

PATIENT
  Sex: Male

DRUGS (2)
  1. ENTRESTO [Suspect]
     Active Substance: SACUBITRIL\VALSARTAN
     Dosage: 50 MG (SACUBITRIL 24MG AND VALSARTAN 26MG) UNK
     Route: 048
  2. ENTRESTO [Suspect]
     Active Substance: SACUBITRIL\VALSARTAN
     Indication: PRODUCT USED FOR UNKNOWN INDICATION
     Dosage: 0.5 DF (SACUBITRIL 49MG AND VALSARTAN 51MG)
     Route: 048

REACTIONS (3)
  - Blood creatinine abnormal [Unknown]
  - Renal disorder [Unknown]
  - Wrong technique in product usage process [Unknown]
